FAERS Safety Report 4277882-X (Version None)
Quarter: 2004Q1

REPORT INFORMATION
  Report Type: 
  Country: None (occurrence: None)
  Receive Date: 20040115
  Receipt Date: 20031231
  Transmission Date: 20041129
  Serious: Yes (Other)
  Sender: FDA-Public Use
  Company Number: A0491787A

PATIENT
  Age: 17 Year
  Sex: Male

DRUGS (1)
  1. ABREVA [Suspect]
     Indication: HERPES SIMPLEX
     Dosage: TOPICAL
     Route: 061

REACTIONS (2)
  - CONDITION AGGRAVATED [None]
  - TESTICULAR SWELLING [None]
